FAERS Safety Report 4380672-0 (Version None)
Quarter: 2004Q2

REPORT INFORMATION
  Report Type: 
  Country: None (occurrence: None)
  Receive Date: 20040614
  Receipt Date: 20040609
  Transmission Date: 20050107
  Serious: Yes (Death)
  Sender: FDA-Public Use
  Company Number: KII-2001-0000967

PATIENT
  Age: 44 Year
  Sex: Female

DRUGS (6)
  1. OXYCONTIN [Suspect]
     Indication: PAIN
     Dosage: 40 MG
  2. ENDONAN (ACETYLSALICYLIC  ACID, OXYCODONE HYDROCHLORIDE) [Suspect]
     Indication: HEADACHE
     Dosage: 1 TABLET, Q6H, PRN
  3. PAXIL [Suspect]
     Dosage: 40 MG
  4. TRILEPTAL ^NOVARTIS^ (OXCARBAZEPINE) [Suspect]
     Dosage: 300 MG
  5. ALPRAZOLAM [Suspect]
     Dosage: 1 MG
  6. VERAPAMIL [Suspect]
     Dosage: 120 MG, TID

REACTIONS (1)
  - INTENTIONAL OVERDOSE [None]
